FAERS Safety Report 13710079 (Version 1)
Quarter: 2017Q3

REPORT INFORMATION
  Report Type: Spontaneous
  Country: US (occurrence: US)
  Receive Date: 20170703
  Receipt Date: 20170703
  Transmission Date: 20171127
  Serious: No
  Sender: FDA-Public Use
  Company Number: US-TEVA-725039ACC

PATIENT
  Sex: Male
  Weight: 61.29 kg

DRUGS (5)
  1. LIDOCAINE TOPICAL 5 PERCENT PATCH [Suspect]
     Active Substance: LIDOCAINE
     Indication: SPINAL LAMINECTOMY
  2. LIDOCAINE TOPICAL 5 PERCENT PATCH [Suspect]
     Active Substance: LIDOCAINE
     Indication: ROTATOR CUFF SYNDROME
  3. FENTANYL. [Concomitant]
     Active Substance: FENTANYL
  4. LIDOCAINE TOPICAL 5 PERCENT PATCH [Suspect]
     Active Substance: LIDOCAINE
     Indication: BACK PAIN
     Route: 061
     Dates: start: 201606, end: 201701
  5. LIDOCAINE TOPICAL 5 PERCENT PATCH [Suspect]
     Active Substance: LIDOCAINE
     Indication: MALAISE

REACTIONS (3)
  - Drug ineffective [Unknown]
  - Application site pain [Unknown]
  - Rash [Recovered/Resolved]
